FAERS Safety Report 20022998 (Version 3)
Quarter: 2021Q4

REPORT INFORMATION
  Report Type: Report from Study
  Country: CO (occurrence: CO)
  Receive Date: 20211102
  Receipt Date: 20211207
  Transmission Date: 20220303
  Serious: Yes (Hospitalization, Disabling)
  Sender: FDA-Public Use
  Company Number: CO-NOVARTISPH-NVSC2021CO249028

PATIENT
  Sex: Female

DRUGS (4)
  1. KISQALI [Suspect]
     Active Substance: RIBOCICLIB
     Indication: Breast cancer metastatic
     Dosage: 600 MG, QD
     Route: 048
     Dates: start: 20210816, end: 202111
  2. KISQALI [Suspect]
     Active Substance: RIBOCICLIB
     Dosage: 600 MG
     Route: 048
  3. FEMARA [Suspect]
     Active Substance: LETROZOLE
     Indication: Breast cancer
     Dosage: 2.5 MG
     Route: 048
     Dates: start: 20210816, end: 202111
  4. FEMARA [Suspect]
     Active Substance: LETROZOLE
     Dosage: 2.5 MG
     Route: 048

REACTIONS (5)
  - Fall [Unknown]
  - Limb injury [Unknown]
  - Gait disturbance [Unknown]
  - Localised infection [Not Recovered/Not Resolved]
  - Pain in extremity [Not Recovered/Not Resolved]
